FAERS Safety Report 16565584 (Version 1)
Quarter: 2019Q3

REPORT INFORMATION
  Report Type: Other
  Country: CA (occurrence: CA)
  Receive Date: 20190712
  Receipt Date: 20190712
  Transmission Date: 20191004
  Serious: Yes (Other)
  Sender: FDA-Public Use
  Company Number: CA-PFIZER INC-2019294820

PATIENT

DRUGS (3)
  1. VENLAFAXINE HCL [Suspect]
     Active Substance: VENLAFAXINE HYDROCHLORIDE
     Dosage: UNK
  2. SERTRALINE HCL [Interacting]
     Active Substance: SERTRALINE HYDROCHLORIDE
     Dosage: UNK
  3. ST. JOHN^S WORT [Interacting]
     Active Substance: ST. JOHN^S WORT
     Dosage: UNK

REACTIONS (2)
  - Serotonin syndrome [Unknown]
  - Drug interaction [Unknown]
